FAERS Safety Report 8296465-8 (Version None)
Quarter: 2012Q2

REPORT INFORMATION
  Report Type: 
  Country: None (occurrence: None)
  Receive Date: 20120418
  Receipt Date: 20120412
  Transmission Date: 20120825
  Serious: Yes (Other)
  Sender: FDA-Public Use
  Company Number: NL-PFIZER INC-2012092015

PATIENT
  Age: 50 Year
  Sex: Male
  Weight: 105 kg

DRUGS (2)
  1. EFFEXOR XR [Suspect]
     Indication: DEPRESSION
     Dosage: UNK MG, UNK
     Dates: end: 20111101
  2. EFFEXOR XR [Suspect]
     Dosage: 300 MG, UNK
     Dates: start: 20111101

REACTIONS (1)
  - HYPOTHERMIA [None]
